FAERS Safety Report 5929697-1 (Version None)
Quarter: 2008Q4

REPORT INFORMATION
  Report Type: 
  Country: None (occurrence: None)
  Receive Date: 20081024
  Receipt Date: 20081020
  Transmission Date: 20090506
  Serious: No
  Sender: FDA-Public Use
  Company Number: US-ELI_LILLY_AND_COMPANY-US200809000407

PATIENT
  Sex: Female

DRUGS (1)
  1. BYETTA [Suspect]
     Indication: TYPE 2 DIABETES MELLITUS
     Dosage: 10 UG, 2/D
     Route: 065
     Dates: start: 20061109, end: 20080821

REACTIONS (3)
  - ABDOMINAL PAIN UPPER [None]
  - LIPASE INCREASED [None]
  - NAUSEA [None]
